FAERS Safety Report 8224899-6 (Version None)
Quarter: 2012Q1

REPORT INFORMATION
  Report Type: 
  Country: None (occurrence: None)
  Receive Date: 20120320
  Receipt Date: 20120320
  Transmission Date: 20120608
  Serious: Yes (Other)
  Sender: FDA-Public Use
  Company Number: None

PATIENT
  Age: 49 Year
  Sex: Female

DRUGS (1)
  1. VENLAFAXINE [Suspect]
     Indication: DEPRESSION
     Dosage: 37.5MG DAILY ORAL
     Route: 048
     Dates: start: 20120312

REACTIONS (4)
  - INSOMNIA [None]
  - EUPHORIC MOOD [None]
  - CHEST PAIN [None]
  - HEART RATE INCREASED [None]
